FAERS Safety Report 11194568 (Version 2)
Quarter: 2015Q2

REPORT INFORMATION
  Report Type: Report from Study
  Country: CA (occurrence: CA)
  Receive Date: 20150616
  Receipt Date: 20150619
  Transmission Date: 20150821
  Serious: Yes (Death, Other)
  Sender: FDA-Public Use
  Company Number: PHHY2015CA071693

PATIENT
  Age: 77 Year
  Sex: Female

DRUGS (1)
  1. CLOZARIL [Suspect]
     Active Substance: CLOZAPINE
     Indication: SCHIZOPHRENIA
     Route: 048
     Dates: start: 20130709

REACTIONS (3)
  - Pulmonary embolism [Fatal]
  - Chronic obstructive pulmonary disease [Unknown]
  - Diaphragmatic paralysis [Unknown]

NARRATIVE: CASE EVENT DATE: 20150209
